FAERS Safety Report 24784676 (Version 1)
Quarter: 2024Q4

REPORT INFORMATION
  Report Type: Spontaneous
  Country: US (occurrence: US)
  Receive Date: 20241227
  Receipt Date: 20241227
  Transmission Date: 20250114
  Serious: Yes (Other)
  Sender: AMGEN
  Company Number: US-AMGEN-USASP2024250874

PATIENT
  Age: 40 Year
  Sex: Female

DRUGS (3)
  1. UPLIZNA [Suspect]
     Active Substance: INEBILIZUMAB-CDON
     Indication: Neuromyelitis optica spectrum disorder
     Dosage: UNK UNK, Q6MO (TWICE A YEAR)
     Route: 065
     Dates: start: 2023
  2. UPLIZNA [Suspect]
     Active Substance: INEBILIZUMAB-CDON
     Dosage: UNK UNK, Q6MO (TWICE A YEAR)
     Route: 065
     Dates: start: 202409, end: 202409
  3. RITUXIMAB [Suspect]
     Active Substance: RITUXIMAB
     Indication: Neuromyelitis optica spectrum disorder
     Dosage: UNK
     Route: 065

REACTIONS (4)
  - Brain oedema [Unknown]
  - Magnetic resonance imaging head abnormal [Unknown]
  - Blood immunoglobulin G decreased [Unknown]
  - Off label use [Unknown]

NARRATIVE: CASE EVENT DATE: 20240101
